FAERS Safety Report 12500964 (Version 3)
Quarter: 2016Q3

REPORT INFORMATION
  Report Type: Report from Study
  Country: CA (occurrence: CA)
  Receive Date: 20160627
  Receipt Date: 20160818
  Transmission Date: 20161109
  Serious: Yes (Hospitalization)
  Sender: FDA-Public Use
  Company Number: CA-JNJFOC-20160615992

PATIENT
  Age: 23 Year
  Sex: Female
  Weight: 57 kg

DRUGS (4)
  1. IMURAN [Concomitant]
     Active Substance: AZATHIOPRINE
     Indication: COLITIS ULCERATIVE
     Route: 048
     Dates: start: 20160530
  2. PREDNISONE. [Concomitant]
     Active Substance: PREDNISONE
     Dosage: TAPERING
     Route: 065
  3. REMICADE [Suspect]
     Active Substance: INFLIXIMAB
     Indication: COLITIS ULCERATIVE
     Dosage: THIRD LOADING DOSE
     Route: 042
     Dates: start: 20160616
  4. REMICADE [Suspect]
     Active Substance: INFLIXIMAB
     Indication: COLITIS ULCERATIVE
     Route: 042
     Dates: start: 20160609

REACTIONS (5)
  - Product use issue [Unknown]
  - Off label use [Unknown]
  - General physical health deterioration [Unknown]
  - Clostridium difficile infection [Recovering/Resolving]
  - Colitis ulcerative [Recovering/Resolving]

NARRATIVE: CASE EVENT DATE: 20160609
